FAERS Safety Report 16024869 (Version 2)
Quarter: 2019Q3

REPORT INFORMATION
  Report Type: Report from Study
  Country: IT (occurrence: IT)
  Receive Date: 20190301
  Receipt Date: 20190828
  Transmission Date: 20191004
  Serious: Yes (Other)
  Sender: FDA-Public Use
  Company Number: IT-BIOGEN-2019BI00703176

PATIENT
  Age: 18 Year
  Sex: Female

DRUGS (2)
  1. XARENEL [Concomitant]
     Indication: VITAMIN D DEFICIENCY
     Route: 048
  2. TECFIDERA [Suspect]
     Active Substance: DIMETHYL FUMARATE
     Indication: RELAPSING-REMITTING MULTIPLE SCLEROSIS
     Route: 048
     Dates: start: 20181107

REACTIONS (2)
  - Leukocytosis [Not Recovered/Not Resolved]
  - Neutrophilia [Not Recovered/Not Resolved]

NARRATIVE: CASE EVENT DATE: 20181215
